FAERS Safety Report 10356491 (Version 2)
Quarter: 2014Q3

REPORT INFORMATION
  Report Type: Spontaneous
  Country: CH (occurrence: CH)
  Receive Date: 20140801
  Receipt Date: 20140902
  Transmission Date: 20150326
  Serious: Yes (Death)
  Sender: FDA-Public Use
  Company Number: CH-BAYER-2014-112615

PATIENT
  Sex: Male

DRUGS (3)
  1. NEXAVAR [Suspect]
     Active Substance: SORAFENIB
     Indication: HEPATOCELLULAR CARCINOMA
     Dosage: 200 MG/24HR, BID
     Route: 048
     Dates: start: 201402
  2. NEXAVAR [Suspect]
     Active Substance: SORAFENIB
     Indication: HEPATOCELLULAR CARCINOMA
     Dosage: UNK (LOW DOSE)
     Dates: start: 20140205, end: 20140221
  3. IMODIUM [LOPERAMIDE HYDROCHLORIDE] [Concomitant]
     Dosage: PRN, UNTIL TID
     Route: 048

REACTIONS (2)
  - Hepatocellular carcinoma [Fatal]
  - Pruritus [Unknown]
